FAERS Safety Report 11287468 (Version 1)
Quarter: 2015Q2

REPORT INFORMATION
  Report Type: Spontaneous
  Country: US (occurrence: None)
  Receive Date: 20150623
  Receipt Date: 20150623
  Transmission Date: 20150821
  Serious: Yes (Other)
  Sender: FDA-Public Use
  Company Number: RB-72269-2015

PATIENT
  Age: 48 Year
  Sex: Female

DRUGS (1)
  1. DEXTROMETHORPHAN/GUAIFENESIN 1200 MG (RB RECKITT BENCKISER)) [Suspect]
     Active Substance: DEXTROMETHORPHAN\GUAIFENESIN
     Indication: COUGH
     Dosage: (1200 MG 1X, TOOK 1 TABLET ON 08-JAN-2015 (TOTAL) UNKNOWN)
     Dates: start: 20150108

REACTIONS (5)
  - Hallucination [None]
  - Palpitations [None]
  - Apparent death [None]
  - Feeling abnormal [None]
  - Insomnia [None]

NARRATIVE: CASE EVENT DATE: 201501
